FAERS Safety Report 9057290 (Version 1)
Quarter: 2013Q1

REPORT INFORMATION
  Report Type: Report from Study
  Country: JP (occurrence: JP)
  Receive Date: 20130131
  Receipt Date: 20130131
  Transmission Date: 20140127
  Serious: Yes (Other)
  Sender: FDA-Public Use
  Company Number: JP-GLAXOSMITHKLINE-B0860828A

PATIENT
  Age: 59 None
  Sex: Female
  Weight: 40 kg

DRUGS (5)
  1. TYKERB [Suspect]
     Indication: BREAST CANCER
     Route: 048
     Dates: start: 20091203, end: 20100810
  2. CYCLOPHOSPHAMIDE [Concomitant]
     Dates: start: 20091203, end: 20100810
  3. LETROZOLE [Concomitant]
     Route: 048
     Dates: end: 20100810
  4. FLUOROURACIL [Concomitant]
     Dates: end: 20100802
  5. METHOTREXATE [Concomitant]
     Dates: end: 20100802

REACTIONS (1)
  - Cellulitis [Unknown]
